FAERS Safety Report 14842764 (Version 1)
Quarter: 2018Q2

REPORT INFORMATION
  Report Type: Spontaneous
  Country: GB (occurrence: GB)
  Receive Date: 20180503
  Receipt Date: 20180503
  Transmission Date: 20180711
  Serious: Yes (Other)
  Sender: FDA-Public Use
  Company Number: PHHY2018GB076195

PATIENT
  Age: 78 Year
  Sex: Female
  Weight: 66.2 kg

DRUGS (3)
  1. LORATADINE. [Suspect]
     Active Substance: LORATADINE
     Indication: RHINITIS
     Dosage: 10 MG, QD
     Route: 048
     Dates: start: 20171113, end: 20171115
  2. CANESTEN [Suspect]
     Active Substance: CLOTRIMAZOLE
     Indication: SKIN IRRITATION
     Dosage: 1 DF, APPLIED SMALL AMOUNT ONCE AT 9AM
     Route: 061
     Dates: start: 20171116, end: 20171116
  3. PARACETAMOL [Concomitant]
     Active Substance: ACETAMINOPHEN
     Indication: PRURITUS
     Dosage: 1 DF, QD AT NIGHT, AND ANOTHER DURING THE NIGHT IF THE ITCHING WOKE ME UP
     Route: 065

REACTIONS (6)
  - Eye pruritus [Not Recovered/Not Resolved]
  - Vision blurred [Not Recovered/Not Resolved]
  - Rhinitis [Not Recovered/Not Resolved]
  - Drug ineffective [Unknown]
  - Headache [Not Recovered/Not Resolved]
  - Dizziness [Not Recovered/Not Resolved]

NARRATIVE: CASE EVENT DATE: 20171116
